FAERS Safety Report 10956509 (Version 2)
Quarter: 2015Q2

REPORT INFORMATION
  Report Type: Spontaneous
  Country: JP (occurrence: JP)
  Receive Date: 20150326
  Receipt Date: 20150528
  Transmission Date: 20150821
  Serious: Yes (Death)
  Sender: FDA-Public Use
  Company Number: JP-TEVA-549544ISR

PATIENT
  Age: 88 Year
  Sex: Male
  Weight: 45 kg

DRUGS (4)
  1. CONCENTRATED HUMAN RED BLOOD CELLS [Concomitant]
     Dosage: 2 DOSAGE FORMS DAILY;
     Dates: start: 20141127, end: 20141128
  2. DUROTEP [Concomitant]
     Active Substance: FENTANYL
     Indication: CANCER PAIN
     Dosage: 2.1 MILLIGRAM DAILY;
     Route: 062
     Dates: start: 20141127, end: 20141129
  3. DUROTEP [Concomitant]
     Active Substance: FENTANYL
     Dosage: 4.2 MILLIGRAM DAILY;
     Route: 062
     Dates: start: 20141130, end: 20141203
  4. E-FEN BUCCAL [Suspect]
     Active Substance: FENTANYL CITRATE
     Indication: BREAKTHROUGH PAIN
     Dosage: 300-400 MICROGRAM, 1 TIME DOSE: 100 MICROGRAM
     Route: 002
     Dates: start: 20141202, end: 20141203

REACTIONS (1)
  - Acute myeloid leukaemia [Fatal]

NARRATIVE: CASE EVENT DATE: 20141203
